FAERS Safety Report 5608251-5 (Version None)
Quarter: 2008Q1

REPORT INFORMATION
  Report Type: 
  Country: None (occurrence: None)
  Receive Date: 20080125
  Receipt Date: 20080110
  Transmission Date: 20080703
  Serious: Yes (Hospitalization)
  Sender: FDA-Public Use
  Company Number: 2008PV000003

PATIENT
  Age: 73 Year
  Sex: Female

DRUGS (6)
  1. DEPOCYT [Suspect]
     Indication: ACUTE MYELOID LEUKAEMIA
     Dosage: 50 MG; QOW; INTH
     Route: 037
     Dates: start: 20070905, end: 20071121
  2. DEPOCYT [Suspect]
     Indication: CENTRAL NERVOUS SYSTEM LEUKAEMIA
     Dosage: 50 MG; QOW; INTH
     Route: 037
     Dates: start: 20070905, end: 20071121
  3. METHOTREXATE (CON.) [Concomitant]
  4. CYTARABINE (CON.) [Concomitant]
  5. CORTICOSTEROIDS (CON.) [Concomitant]
  6. AZACITIDINE (CON.) [Concomitant]

REACTIONS (2)
  - CAUDA EQUINA SYNDROME [None]
  - FEBRILE BONE MARROW APLASIA [None]
